FAERS Safety Report 6259345-5 (Version None)
Quarter: 2009Q3

REPORT INFORMATION
  Report Type: 
  Country: None (occurrence: None)
  Receive Date: 20090706
  Receipt Date: 20090629
  Transmission Date: 20100115
  Serious: Yes (Other)
  Sender: FDA-Public Use
  Company Number: SPV1-2009-01350

PATIENT
  Age: 40 Year
  Sex: Female

DRUGS (1)
  1. FOSRENOL [Suspect]
     Indication: HYPERPHOSPHATAEMIA
     Dosage: 1000 MG, EACH MEAL, ORAL
     Route: 048
     Dates: start: 20090101

REACTIONS (3)
  - LARGE INTESTINAL OBSTRUCTION [None]
  - NAUSEA [None]
  - VOMITING [None]
